FAERS Safety Report 14034207 (Version 1)
Quarter: 2017Q4

REPORT INFORMATION
  Report Type: Spontaneous
  Country: US (occurrence: US)
  Receive Date: 20171003
  Receipt Date: 20171003
  Transmission Date: 20180321
  Serious: No
  Sender: FDA-Public Use
  Company Number: US-TEVA-801140USA

PATIENT
  Sex: Male

DRUGS (2)
  1. CLONAZEPAM. [Suspect]
     Active Substance: CLONAZEPAM
     Indication: ANXIETY
     Dates: start: 201705, end: 20170819
  2. WELLBUTRIN [Suspect]
     Active Substance: BUPROPION HYDROCHLORIDE
     Route: 065

REACTIONS (14)
  - Restlessness [Not Recovered/Not Resolved]
  - Confusional state [Recovered/Resolved]
  - Amnesia [Recovering/Resolving]
  - Jealous delusion [Recovered/Resolved]
  - Obsessive thoughts [Unknown]
  - Irritability [Unknown]
  - Agitation [Unknown]
  - Anxiety [Not Recovered/Not Resolved]
  - Insomnia [Not Recovered/Not Resolved]
  - Anger [Recovered/Resolved]
  - Imprisonment [Unknown]
  - Disturbance in attention [Recovering/Resolving]
  - Aggression [Unknown]
  - Muscle spasms [Unknown]

NARRATIVE: CASE EVENT DATE: 201705
